FAERS Safety Report 7274743-9 (Version None)
Quarter: 2011Q1

REPORT INFORMATION
  Report Type: 
  Country: None (occurrence: None)
  Receive Date: 20110202
  Receipt Date: 20110202
  Transmission Date: 20110831
  Serious: No
  Sender: FDA-Public Use
  Company Number: None

PATIENT
  Age: 54 Year
  Sex: Male
  Weight: 136 kg

DRUGS (2)
  1. LABETALOL HCL [Suspect]
     Dosage: 200 MG ONCE PO
     Route: 048
     Dates: start: 20100722, end: 20100722
  2. LABETALOL HCL [Suspect]
     Dosage: 40 MG ONCE IV
     Route: 042
     Dates: start: 20100721, end: 20100721

REACTIONS (1)
  - ATRIOVENTRICULAR BLOCK [None]
